FAERS Safety Report 6812699-0 (Version None)
Quarter: 2010Q3

REPORT INFORMATION
  Report Type: 
  Country: None (occurrence: None)
  Receive Date: 20100701
  Receipt Date: 20100625
  Transmission Date: 20110219
  Serious: Yes (Death, Hospitalization)
  Sender: FDA-Public Use
  Company Number: GB-ROCHE-712125

PATIENT
  Age: 70 Year
  Sex: Female

DRUGS (24)
  1. CEFTRIAXONE SODIUM [Suspect]
     Indication: PNEUMONIA
     Route: 065
  2. AMIKACIN [Suspect]
     Indication: BACTERAEMIA
     Route: 065
  3. AMITRIPTYLINE [Suspect]
     Route: 065
  4. ASPIRIN [Suspect]
     Route: 065
  5. AMPICILLIN [Suspect]
     Indication: BACTERAEMIA
     Route: 065
  6. CIPROFLOXACIN [Suspect]
     Indication: BACTERAEMIA
     Route: 065
  7. CITALOPRAM HYDROBROMIDE [Suspect]
     Route: 065
  8. ENALAPRIL MALEATE [Suspect]
     Indication: HYPERTENSION
     Route: 065
  9. FRUSEMIDE [Suspect]
     Indication: HYPERTENSION
     Route: 065
  10. GLYBURIDE [Suspect]
     Route: 065
  11. HYDROCORTISONE [Suspect]
     Indication: TOXIC EPIDERMAL NECROLYSIS
     Route: 065
  12. IMMUNE GLOBULIN IV NOS [Suspect]
     Indication: PRODUCT USED FOR UNKNOWN INDICATION
     Route: 042
  13. LEVOFLOXACIN [Suspect]
     Route: 065
  14. METFORMIN HYDROCHLORIDE [Suspect]
     Route: 065
  15. OMEPRAZOLE [Suspect]
     Indication: PRODUCT USED FOR UNKNOWN INDICATION
     Route: 065
  16. PIPERACILLIN [Suspect]
     Route: 065
  17. SIMVASTATIN [Suspect]
     Route: 065
  18. TAZOBACTAM [Suspect]
     Indication: PRODUCT USED FOR UNKNOWN INDICATION
     Route: 065
  19. THEOPHYLLINE [Suspect]
     Route: 065
  20. VANCOMYCIN [Suspect]
     Route: 065
  21. VERAPAMIL [Suspect]
     Indication: HYPERTENSION
     Route: 065
  22. DEXTROSE [Concomitant]
     Route: 042
  23. LATANOPROST [Concomitant]
     Indication: PRODUCT USED FOR UNKNOWN INDICATION
     Route: 065
  24. MAGNESIUM SULFATE [Concomitant]

REACTIONS (5)
  - ACUTE RESPIRATORY DISTRESS SYNDROME [None]
  - BACTERIAL INFECTION [None]
  - HAEMORRHAGE INTRACRANIAL [None]
  - HYPOGLYCAEMIA [None]
  - TOXIC EPIDERMAL NECROLYSIS [None]
